FAERS Safety Report 5250269-9 (Version None)
Quarter: 2007Q1

REPORT INFORMATION
  Report Type: 
  Country: None (occurrence: None)
  Receive Date: 20070228
  Receipt Date: 20060314
  Transmission Date: 20070707
  Serious: No
  Sender: FDA-Public Use
  Company Number: US-GLAXOSMITHKLINE-A0597517A

PATIENT
  Age: 35 Year
  Sex: Female

DRUGS (6)
  1. LAMICTAL [Suspect]
     Indication: BIPOLAR II DISORDER
     Dosage: 50MG PER DAY
     Route: 048
     Dates: start: 20060131
  2. METFORMIN HCL [Concomitant]
  3. LITHIUM CARBONATE [Concomitant]
  4. SPIRONOLACTONE [Concomitant]
  5. ACYCLOVIR [Concomitant]
  6. RITALIN [Concomitant]

REACTIONS (4)
  - BLOOD GLUCOSE NORMAL [None]
  - HAIR COLOUR CHANGES [None]
  - HAIR TEXTURE ABNORMAL [None]
  - THERAPEUTIC RESPONSE UNEXPECTED [None]
